FAERS Safety Report 18382420 (Version 1)
Quarter: 2020Q4

REPORT INFORMATION
  Report Type: Spontaneous
  Country: US (occurrence: US)
  Receive Date: 20201014
  Receipt Date: 20201014
  Transmission Date: 20210114
  Serious: Yes (Disabling)
  Sender: FDA-Public Use
  Company Number: None

PATIENT
  Age: 71 Year
  Sex: Male
  Weight: 112 kg

DRUGS (21)
  1. SEVELAMER [Suspect]
     Active Substance: SEVELAMER
     Indication: HYPERPHOSPHATAEMIA
     Route: 048
     Dates: start: 20200717, end: 20200803
  2. OXYCODONE [Concomitant]
     Active Substance: OXYCODONE
     Dates: start: 20200716
  3. POLYETHYLENE GLYCOL [Concomitant]
     Active Substance: POLYETHYLENE GLYCOLS
     Dates: start: 20200731
  4. SULFAMETHOXAZOLE/TRIMETHOPRIM [Concomitant]
     Active Substance: SULFAMETHOXAZOLE\TRIMETHOPRIM
     Dates: start: 20200723
  5. ASPIRIN 81 MG TABLET [Concomitant]
     Dates: start: 20200817
  6. ATORVASTATIN [Concomitant]
     Active Substance: ATORVASTATIN
  7. CALCIUM CARBONATE. [Concomitant]
     Active Substance: CALCIUM CARBONATE
     Dates: start: 20200721, end: 20200803
  8. CITALOPRAM [Concomitant]
     Active Substance: CITALOPRAM HYDROBROMIDE
  9. MULTIVITAMIN [Concomitant]
     Active Substance: VITAMINS
     Dates: start: 20200716
  10. PANTOPRAZOLE [Concomitant]
     Active Substance: PANTOPRAZOLE
     Dates: start: 20200716
  11. MYCOPHENOLATE [Concomitant]
     Active Substance: MYCOPHENOLIC ACID
     Dates: start: 20200716
  12. ONDANSETRON [Concomitant]
     Active Substance: ONDANSETRON
     Dates: start: 20200716
  13. BELATACEPT [Concomitant]
     Active Substance: BELATACEPT
     Dates: start: 20200724
  14. TACROLIMUS. [Concomitant]
     Active Substance: TACROLIMUS
     Dates: start: 20200715, end: 20200722
  15. HEPARIN [Concomitant]
     Active Substance: HEPARIN SODIUM
  16. TAMSULOSIN [Concomitant]
     Active Substance: TAMSULOSIN
     Dates: start: 20200719
  17. FLUCONAZOLE. [Concomitant]
     Active Substance: FLUCONAZOLE
     Dates: start: 20200728, end: 20200803
  18. PREDNISONE. [Concomitant]
     Active Substance: PREDNISONE
     Dates: start: 20200720
  19. RANOLAZINE. [Concomitant]
     Active Substance: RANOLAZINE
  20. SODIUM ZIRCONIUM CYCLOSILICATE. [Suspect]
     Active Substance: SODIUM ZIRCONIUM CYCLOSILICATE
     Indication: HYPERKALAEMIA
     Route: 048
     Dates: start: 20200802, end: 20200803
  21. VALGANCICLOVIR. [Concomitant]
     Active Substance: VALGANCICLOVIR
     Dates: start: 20200723

REACTIONS (5)
  - Obstruction [None]
  - Pneumoperitoneum [None]
  - Abdominal discomfort [None]
  - Ileus [None]
  - Fall [None]

NARRATIVE: CASE EVENT DATE: 20200803
